FAERS Safety Report 5430817-6 (Version None)
Quarter: 2007Q3

REPORT INFORMATION
  Report Type: 
  Country: None (occurrence: None)
  Receive Date: 20070830
  Receipt Date: 20061204
  Transmission Date: 20080115
  Serious: No
  Sender: FDA-Public Use
  Company Number: A0630234A

PATIENT
  Age: 34 Year
  Sex: Male

DRUGS (3)
  1. WELLBUTRIN XL [Suspect]
     Indication: PANIC ATTACK
     Dosage: 300MG VARIABLE DOSE
     Route: 048
     Dates: start: 20061001
  2. ANUSOL [Concomitant]
  3. ANTIBIOTIC [Concomitant]

REACTIONS (2)
  - DIZZINESS [None]
  - HEADACHE [None]
